FAERS Safety Report 6421839-7 (Version None)
Quarter: 2009Q4

REPORT INFORMATION
  Report Type: 
  Country: None (occurrence: None)
  Receive Date: 20091030
  Receipt Date: 20091026
  Transmission Date: 20100525
  Serious: Yes (Hospitalization)
  Sender: FDA-Public Use
  Company Number: B0599865A

PATIENT
  Sex: Female

DRUGS (2)
  1. ALLI [Suspect]
     Indication: DRUG USE FOR UNKNOWN INDICATION
     Route: 048
     Dates: start: 20090506, end: 20090601
  2. DIET MEDICATION [Suspect]
     Indication: DRUG USE FOR UNKNOWN INDICATION
     Dosage: 1CAP PER DAY
     Route: 048
     Dates: start: 20090506, end: 20090601

REACTIONS (5)
  - HEPATIC FUNCTION ABNORMAL [None]
  - LEUKOPENIA [None]
  - RHABDOMYOLYSIS [None]
  - THROMBOCYTOPENIA [None]
  - TOXICOLOGIC TEST ABNORMAL [None]
